FAERS Safety Report 8251488-X (Version None)
Quarter: 2012Q2

REPORT INFORMATION
  Report Type: 
  Country: None (occurrence: None)
  Receive Date: 20120402
  Receipt Date: 20120322
  Transmission Date: 20120825
  Serious: Yes (Other)
  Sender: FDA-Public Use
  Company Number: IL-GENZYME-POMP-1002102

PATIENT
  Sex: Female
  Weight: 21 kg

DRUGS (5)
  1. RITUXIMAB [Concomitant]
     Indication: IMMUNOMODULATORY THERAPY
     Dosage: UNK
  2. INTRAVENOUS IMMNOGLOBULIN [Concomitant]
     Indication: IMMUNOMODULATORY THERAPY
     Dosage: UNK
  3. MYOZYME [Suspect]
     Indication: GLYCOGEN STORAGE DISEASE TYPE II
     Dosage: UNK
     Route: 042
  4. VELCADE [Concomitant]
     Indication: IMMUNOMODULATORY THERAPY
     Dosage: UNK
  5. METHOTREXATE [Concomitant]
     Indication: IMMUNOMODULATORY THERAPY
     Dosage: UNK

REACTIONS (2)
  - RESPIRATORY DISORDER [None]
  - MOTOR DYSFUNCTION [None]
